FAERS Safety Report 16711012 (Version 1)
Quarter: 2019Q4

REPORT INFORMATION
  Report Type: Spontaneous
  Country: US (occurrence: US)
  Receive Date: 20190816
  Receipt Date: 20190816
  Transmission Date: 20200122
  Serious: Yes (Hospitalization)
  Sender: FDA-Public Use
  Company Number: None

PATIENT
  Age: 91 Year
  Sex: Male
  Weight: 77.2 kg

DRUGS (14)
  1. CARVEDILOL 12.5MG [Concomitant]
     Active Substance: CARVEDILOL
  2. CANDESARTAN 4MG [Concomitant]
     Active Substance: CANDESARTAN
  3. ALIGN 4MG [Concomitant]
  4. PRADAXA [Suspect]
     Active Substance: DABIGATRAN ETEXILATE MESYLATE
     Route: 048
  5. ASPIRIN 81MG [Concomitant]
     Active Substance: ASPIRIN
  6. CRANBERRY TABLETS [Concomitant]
  7. FINASTERIDE 5MG [Concomitant]
     Active Substance: FINASTERIDE
  8. SALINE MIST [Concomitant]
     Active Substance: SODIUM CHLORIDE
  9. FUROSEMIDE 20MG [Concomitant]
     Active Substance: FUROSEMIDE
  10. MIRTAZAPINE 15MG [Concomitant]
     Active Substance: MIRTAZAPINE
  11. QUETIAPINE 50MG [Concomitant]
     Active Substance: QUETIAPINE
  12. COQ10 200MG [Concomitant]
  13. PRAVASTATIN. [Concomitant]
     Active Substance: PRAVASTATIN
  14. VITMAIN D3 5000 UNITS [Concomitant]

REACTIONS (2)
  - Abdominal pain upper [None]
  - Chest pain [None]
